FAERS Safety Report 24574199 (Version 1)
Quarter: 2024Q4

REPORT INFORMATION
  Report Type: Spontaneous
  Country: RS (occurrence: RS)
  Receive Date: 20241104
  Receipt Date: 20241104
  Transmission Date: 20250114
  Serious: Yes (Other)
  Sender: ROCHE
  Company Number: RS-ROCHE-10000121229

PATIENT
  Age: 72 Year
  Sex: Male

DRUGS (1)
  1. ATEZOLIZUMAB [Suspect]
     Active Substance: ATEZOLIZUMAB
     Indication: Adenocarcinoma
     Route: 065
     Dates: start: 20240808, end: 20240827

REACTIONS (1)
  - Metastases to lung [Unknown]
